FAERS Safety Report 21052807 (Version 2)
Quarter: 2022Q3

REPORT INFORMATION
  Report Type: Spontaneous
  Country: US (occurrence: US)
  Receive Date: 20220707
  Receipt Date: 20220707
  Transmission Date: 20221027
  Serious: Yes (Other)
  Sender: FDA-Public Use
  Company Number: US-GILEAD-2022-0587581

PATIENT
  Age: 8 Year
  Sex: Male
  Weight: 29.5 kg

DRUGS (11)
  1. CAYSTON [Suspect]
     Active Substance: AZTREONAM
     Indication: Pseudomonas bronchitis
     Dosage: UNK, 28 DAYS, ALTERNATING MONTHS
     Route: 048
     Dates: start: 202002
  2. ALBUTEROL SULFATE [Concomitant]
     Active Substance: ALBUTEROL SULFATE
  3. SODIUM CHLORIDE [Concomitant]
     Active Substance: SODIUM CHLORIDE
  4. PULMOZYME [Concomitant]
     Active Substance: DORNASE ALFA
  5. AZITHROMYCIN [Concomitant]
     Active Substance: AZITHROMYCIN
  6. PEDIASURE PEPTIDE 1.5 CAL [Concomitant]
  7. ACETAMINOPHEN [Concomitant]
     Active Substance: ACETAMINOPHEN
  8. FLUTICASONE [Concomitant]
     Active Substance: FLUTICASONE
  9. IBUPROFEN [Concomitant]
     Active Substance: IBUPROFEN
  10. LACTULOSE [Concomitant]
     Active Substance: LACTULOSE
  11. MIRALAX [Concomitant]
     Active Substance: POLYETHYLENE GLYCOL 3350

REACTIONS (9)
  - Bronchopulmonary dysplasia [Not Recovered/Not Resolved]
  - Deafness [Not Recovered/Not Resolved]
  - Cough [Not Recovered/Not Resolved]
  - Weight decreased [Recovering/Resolving]
  - Hypophagia [Not Recovered/Not Resolved]
  - Staphylococcal infection [Not Recovered/Not Resolved]
  - Constipation [Not Recovered/Not Resolved]
  - Bronchial secretion retention [Unknown]
  - Off label use [Not Recovered/Not Resolved]
